FAERS Safety Report 7931488-7 (Version None)
Quarter: 2011Q4

REPORT INFORMATION
  Report Type: 
  Country: None (occurrence: None)
  Receive Date: 20111121
  Receipt Date: 20111121
  Transmission Date: 20120403
  Serious: Yes (Life-Threatening, Hospitalization)
  Sender: FDA-Public Use
  Company Number: None

PATIENT
  Age: 45 Year
  Sex: Male

DRUGS (6)
  1. LORAZEPAM [Concomitant]
  2. LORAZEPAM [Concomitant]
  3. BENZTROPINE MESYLATE [Concomitant]
  4. HALOPERIDOL DECANOATE [Suspect]
     Indication: PSYCHOTIC DISORDER
     Dates: start: 20110728, end: 20110728
  5. DIVALPROEX EXTENDED-RELEASE [Concomitant]
  6. FLUPHENAZINE DECANOATE + ORAL [Concomitant]
     Indication: PSYCHOTIC DISORDER
     Dates: start: 20110628, end: 20110807

REACTIONS (8)
  - RESPIRATORY FAILURE [None]
  - LETHARGY [None]
  - HYPOTENSION [None]
  - SENSORY DISTURBANCE [None]
  - TACHYCARDIA [None]
  - PNEUMONIA ASPIRATION [None]
  - DYSPHAGIA [None]
  - OXYGEN SATURATION DECREASED [None]
